FAERS Safety Report 13057560 (Version 4)
Quarter: 2020Q3

REPORT INFORMATION
  Report Type: Spontaneous
  Country: US (occurrence: US)
  Receive Date: 20161223
  Receipt Date: 20191015
  Transmission Date: 20201104
  Serious: Yes (Hospitalization, Other)
  Sender: FDA-Public Use
  Company Number: US-009507513-1612USA009688

PATIENT
  Age: 71 Year
  Sex: Male
  Weight: 71.7 kg

DRUGS (15)
  1. LIDOCAINE HYDROCHLORIDE. [Suspect]
     Active Substance: LIDOCAINE HYDROCHLORIDE
     Indication: ANAESTHESIA
     Dosage: 100 MG AT 08:00 THEN 6 ML/HR CONTINUOUS FROM  08:15?11:15, 11:40?16:05
     Route: 042
     Dates: start: 20160812, end: 20160812
  2. DECADRON [Suspect]
     Active Substance: DEXAMETHASONE
     Indication: INFLAMMATION
     Dosage: 8 MG, SINGLE
     Route: 042
     Dates: start: 20160812, end: 20160812
  3. ZEMURON [Suspect]
     Active Substance: ROCURONIUM BROMIDE
     Indication: ANAESTHESIA
     Dosage: 50 MG, UNK
     Route: 042
     Dates: start: 20160812, end: 20160812
  4. ZOFRAN [Concomitant]
     Active Substance: ONDANSETRON HYDROCHLORIDE
     Indication: PROPHYLAXIS OF NAUSEA AND VOMITING
     Dosage: UNK
     Dates: start: 20160812, end: 20160812
  5. SUCCINYLCHOLINE CHLORIDE. [Suspect]
     Active Substance: SUCCINYLCHOLINE CHLORIDE
     Indication: PARALYSIS
     Dosage: 100 MG, SINLGE
     Route: 042
     Dates: start: 20160812, end: 20160812
  6. EPHEDRINE. [Suspect]
     Active Substance: EPHEDRINE
     Indication: HYPOTENSION
     Dosage: 150 MG, SINGLE
     Route: 042
     Dates: start: 20160812, end: 20160812
  7. PHENYLEPHRINE [Concomitant]
     Active Substance: PHENYLEPHRINE HYDROCHLORIDE
     Indication: PROPHYLAXIS
     Dosage: UNK
     Dates: start: 20160812, end: 20160812
  8. ASPIRIN. [Concomitant]
     Active Substance: ASPIRIN
     Indication: CORONARY ARTERY DISEASE
     Dosage: UNK
     Dates: start: 19931202, end: 20160805
  9. PROPOFOL. [Suspect]
     Active Substance: PROPOFOL
     Indication: ANAESTHESIA
     Dosage: 150 MG AT 08:00 THEN CONTINUOUS 08:05?11:15, 11:40?15:55
     Dates: start: 20160812, end: 20160812
  10. METOPROLOL TARTRATE. [Concomitant]
     Active Substance: METOPROLOL TARTRATE
     Indication: CORONARY ARTERY DISEASE
     Dosage: UNK
     Dates: start: 20070102, end: 20160812
  11. HYDROMORPHONE HYDROCHLORIDE. [Suspect]
     Active Substance: HYDROMORPHONE HYDROCHLORIDE
     Indication: PAIN
     Dosage: 1 MG, SINGLE
     Route: 042
     Dates: start: 20160812, end: 20160812
  12. PARACETAMOL ACTAVIS [Suspect]
     Active Substance: ACETAMINOPHEN
     Indication: PAIN
     Dosage: 1000 MG, ONCE
     Route: 042
     Dates: start: 20160812, end: 20160812
  13. LISINOPRIL. [Concomitant]
     Active Substance: LISINOPRIL
     Indication: HYPERTENSION
     Dosage: UNK
     Dates: start: 20140107, end: 20160812
  14. ATORVASTATIN [Concomitant]
     Active Substance: ATORVASTATIN
     Indication: HYPERLIPIDAEMIA
     Dosage: UNK
     Dates: start: 20160404, end: 20160812
  15. FENTANYL. [Suspect]
     Active Substance: FENTANYL
     Indication: ANAESTHESIA
     Dosage: TOTAL 250 UG GIVEN AT 4 DIFFERENT TIMES
     Route: 042
     Dates: start: 20160812, end: 20160812

REACTIONS (2)
  - Cerebral infarction [Recovered/Resolved]
  - Postoperative delirium [Recovered/Resolved]

NARRATIVE: CASE EVENT DATE: 20160812
